FAERS Safety Report 22260807 (Version 1)
Quarter: 2023Q2

REPORT INFORMATION
  Report Type: Report from Study
  Country: GB (occurrence: GB)
  Receive Date: 20230427
  Receipt Date: 20230427
  Transmission Date: 20230722
  Serious: Yes (Other)
  Sender: FDA-Public Use
  Company Number: GB-PFIZER INC-202300155404

PATIENT
  Sex: Male

DRUGS (3)
  1. BORTEZOMIB [Suspect]
     Active Substance: BORTEZOMIB
     Indication: Light chain disease
     Dosage: UNK
     Route: 065
  2. DEXAMETHASONE SODIUM PHOSPHATE [Suspect]
     Active Substance: DEXAMETHASONE SODIUM PHOSPHATE
     Indication: Light chain disease
     Dosage: UNK
     Route: 065
     Dates: start: 2017
  3. THALIDOMIDE [Suspect]
     Active Substance: THALIDOMIDE
     Indication: Light chain disease
     Dosage: UNK
     Route: 065
     Dates: start: 2017

REACTIONS (2)
  - Disease progression [Unknown]
  - Therapy partial responder [Unknown]
